FAERS Safety Report 8720588 (Version 2)
Quarter: 2015Q1

REPORT INFORMATION
  Report Type: Report from Study
  Country: US (occurrence: US)
  Receive Date: 20120813
  Receipt Date: 20150313
  Transmission Date: 20150721
  Serious: Yes (Death)
  Sender: FDA-Public Use
  Company Number: US-ROCHE-1097861

PATIENT
  Age: 53 Year
  Sex: Male

DRUGS (4)
  1. ACTIVASE [Suspect]
     Active Substance: ALTEPLASE
     Indication: AORTIC EMBOLUS
     Dosage: 100 ML/HR
     Route: 042
  2. ACTIVASE [Suspect]
     Active Substance: ALTEPLASE
     Indication: LERICHE SYNDROME
  3. ACTIVASE [Suspect]
     Active Substance: ALTEPLASE
     Indication: SEASONAL AFFECTIVE DISORDER
  4. ACTIVASE [Suspect]
     Active Substance: ALTEPLASE
     Indication: LERICHE SYNDROME

REACTIONS (1)
  - Death [Fatal]

NARRATIVE: CASE EVENT DATE: 20081124
